FAERS Safety Report 7687412-8 (Version None)
Quarter: 2011Q3

REPORT INFORMATION
  Report Type: 
  Country: None (occurrence: None)
  Receive Date: 20110816
  Receipt Date: 20110812
  Transmission Date: 20111222
  Serious: Yes (Hospitalization)
  Sender: FDA-Public Use
  Company Number: US-GILEAD-2011-0042918

PATIENT
  Age: 81 Year
  Sex: Male

DRUGS (2)
  1. ADCIRCA [Concomitant]
  2. LETAIRIS [Suspect]
     Indication: PULMONARY HYPERTENSION
     Route: 048
     Dates: start: 20110524

REACTIONS (1)
  - PULMONARY ARTERIAL HYPERTENSION [None]
